FAERS Safety Report 10607450 (Version 2)
Quarter: 2015Q1

REPORT INFORMATION
  Report Type: Spontaneous
  Country: US (occurrence: US)
  Receive Date: 20141125
  Receipt Date: 20150121
  Transmission Date: 20150720
  Serious: Yes (Other)
  Sender: FDA-Public Use
  Company Number: US-SA-2014SA160655

PATIENT

DRUGS (1)
  1. MULTAQ [Suspect]
     Active Substance: DRONEDARONE
     Route: 065

REACTIONS (1)
  - Atrioventricular block [Unknown]
